FAERS Safety Report 19771308 (Version 1)
Quarter: 2021Q3

REPORT INFORMATION
  Report Type: Spontaneous
  Country: US (occurrence: US)
  Receive Date: 20210901
  Receipt Date: 20210901
  Transmission Date: 20211014
  Serious: No
  Sender: FDA-Public Use
  Company Number: US-TAKEDA-2021TUS054077

PATIENT
  Sex: Male
  Weight: 78 kg

DRUGS (10)
  1. PREDNISONE. [Concomitant]
     Active Substance: PREDNISONE
     Indication: RHEUMATOID ARTHRITIS
     Dosage: 2.5 MILLIGRAM
     Route: 065
  2. FEBUXOSTAT. [Suspect]
     Active Substance: FEBUXOSTAT
     Indication: PRODUCT USED FOR UNKNOWN INDICATION
     Dosage: UNK
     Route: 065
     Dates: start: 202010
  3. ULORIC [Suspect]
     Active Substance: FEBUXOSTAT
     Indication: RHEUMATOID ARTHRITIS
     Dosage: UNK
     Route: 065
     Dates: start: 202101
  4. COLCRYS [Suspect]
     Active Substance: COLCHICINE
     Indication: RHEUMATOID ARTHRITIS
  5. PREDNISONE. [Concomitant]
     Active Substance: PREDNISONE
     Indication: POLYARTHRITIS
     Dosage: 5 MILLIGRAM
     Route: 065
  6. ULORIC [Suspect]
     Active Substance: FEBUXOSTAT
     Indication: POLYARTHRITIS
     Dosage: 40 MILLIGRAM
     Route: 065
     Dates: start: 2012
  7. COLCRYS [Suspect]
     Active Substance: COLCHICINE
     Indication: POLYARTHRITIS
     Dosage: UNK
     Route: 065
  8. ULORIC [Suspect]
     Active Substance: FEBUXOSTAT
     Indication: GOUTY TOPHUS
     Dosage: UNK
     Route: 065
     Dates: start: 202106
  9. COLCRYS [Suspect]
     Active Substance: COLCHICINE
     Indication: GOUT
  10. PREDNISONE. [Concomitant]
     Active Substance: PREDNISONE
     Indication: GOUTY TOPHUS

REACTIONS (5)
  - Discomfort [Unknown]
  - Swelling [Unknown]
  - Pain [Unknown]
  - Drug ineffective [Unknown]
  - Inflammation [Unknown]
